FAERS Safety Report 7208375-5 (Version None)
Quarter: 2011Q1

REPORT INFORMATION
  Report Type: 
  Country: None (occurrence: None)
  Receive Date: 20110104
  Receipt Date: 20101228
  Transmission Date: 20110831
  Serious: Yes (Death)
  Sender: FDA-Public Use
  Company Number: PHHY2010JP79562

PATIENT
  Sex: Male

DRUGS (10)
  1. DECADRON [Concomitant]
     Indication: PROSTATE CANCER
  2. LENDORMIN [Concomitant]
     Dosage: 0.25 MG
     Dates: start: 20081126, end: 20090721
  3. MAGLAX [Concomitant]
     Dosage: 2 G
     Route: 048
     Dates: start: 20081126, end: 20090721
  4. ZOLEDRONATE [Suspect]
     Indication: METASTASES TO BONE
     Dosage: 4 MG EVERY 4 WEEKS
     Route: 041
     Dates: start: 20071106, end: 20090616
  5. ASPIRIN [Concomitant]
     Dosage: 100 MG
     Route: 048
     Dates: start: 20081126
  6. ETHINYL ESTRADIOL [Concomitant]
     Indication: PROSTATE CANCER
     Dosage: 1 MG
     Route: 048
     Dates: start: 20051216, end: 20090721
  7. LASIX [Concomitant]
     Indication: PROPHYLAXIS
     Dosage: 20 MG
     Route: 048
     Dates: start: 20060224, end: 20070820
  8. ESTRACYT [Concomitant]
     Indication: PROSTATE CANCER
     Dosage: 2 DF
     Route: 048
     Dates: start: 20080528, end: 20081111
  9. TAMSULOSIN HCL [Concomitant]
     Indication: BENIGN PROSTATIC HYPERPLASIA
     Dosage: 0.2 MG
     Route: 048
     Dates: start: 20060818, end: 20080520
  10. TAXOTERE [Concomitant]
     Indication: PROSTATE CANCER
     Dosage: 80 MG
     Dates: start: 20060925, end: 20070814

REACTIONS (1)
  - NEOPLASM MALIGNANT [None]
